FAERS Safety Report 19270265 (Version 1)
Quarter: 2021Q2

REPORT INFORMATION
  Report Type: Report from Study
  Country: CA (occurrence: CA)
  Receive Date: 20210518
  Receipt Date: 20210518
  Transmission Date: 20210717
  Serious: Yes (Hospitalization, Other)
  Sender: FDA-Public Use
  Company Number: CA-PFIZER INC-2019453782

PATIENT
  Age: 57 Year
  Sex: Female
  Weight: 66 kg

DRUGS (11)
  1. AVASTIN [Suspect]
     Active Substance: BEVACIZUMAB
     Dosage: 400 MG, UNK (1 EVRY 2 WEEKS)
     Route: 042
  2. DILANTIN [Suspect]
     Active Substance: PHENYTOIN
     Dosage: 400 MG, DAILY
     Route: 065
  3. DILANTIN [Suspect]
     Active Substance: PHENYTOIN
     Dosage: 300 MG, DAILY
     Dates: start: 201305
  4. CLOBAZAM. [Concomitant]
     Active Substance: CLOBAZAM
  5. AVASTIN [Suspect]
     Active Substance: BEVACIZUMAB
     Dosage: UNK
     Route: 042
  6. DILANTIN [Suspect]
     Active Substance: PHENYTOIN
     Indication: SEIZURE PROPHYLAXIS
     Dosage: 330 MG, DAILY
     Route: 065
  7. AVASTIN [Suspect]
     Active Substance: BEVACIZUMAB
     Indication: GLIOBLASTOMA
     Dosage: 330 MG, UNK (1 EVRY 2 WEEKS)
     Route: 042
     Dates: start: 20130327
  8. ETOPOSIDE. [Suspect]
     Active Substance: ETOPOSIDE
     Dosage: 50 MG, 2X/DAY FOR 21 DAYS, 7 DAYS OFF
     Route: 048
     Dates: start: 20131212
  9. DEXAMETHASONE. [Concomitant]
     Active Substance: DEXAMETHASONE
     Dosage: UNK
     Route: 065
     Dates: start: 20130320, end: 20130816
  10. AVASTIN [Suspect]
     Active Substance: BEVACIZUMAB
     Dosage: 660 MG, UNK (1 EVRY 2 WEEKS)
     Route: 042
     Dates: start: 20131001, end: 20140121
  11. AVASTIN [Suspect]
     Active Substance: BEVACIZUMAB
     Dosage: 400 MG, UNK (1 EVRY 2 WEEKS)
     Route: 042

REACTIONS (52)
  - Feeling cold [Unknown]
  - Gingival pain [Recovered/Resolved]
  - Nasopharyngitis [Recovered/Resolved]
  - Decreased appetite [Not Recovered/Not Resolved]
  - Muscular weakness [Not Recovered/Not Resolved]
  - Myalgia [Unknown]
  - Reflexes abnormal [Unknown]
  - Rhinorrhoea [Recovered/Resolved]
  - Seizure [Unknown]
  - Blister [Recovering/Resolving]
  - Diarrhoea [Recovered/Resolved]
  - Headache [Unknown]
  - Swelling [Unknown]
  - Dyspnoea [Not Recovered/Not Resolved]
  - Cough [Not Recovered/Not Resolved]
  - Abdominal pain [Unknown]
  - Balance disorder [Recovered/Resolved]
  - Fall [Not Recovered/Not Resolved]
  - Fatigue [Unknown]
  - Infusion related reaction [Recovered/Resolved]
  - Thermal burn [Recovering/Resolving]
  - Weight increased [Unknown]
  - Feeling cold [Recovered/Resolved]
  - Fatigue [Not Recovered/Not Resolved]
  - Anticonvulsant drug level increased [Unknown]
  - Diarrhoea [Recovered/Resolved]
  - Drug ineffective [Unknown]
  - Gait disturbance [Not Recovered/Not Resolved]
  - Hemiparesis [Not Recovered/Not Resolved]
  - Hypotension [Not Recovered/Not Resolved]
  - Nausea [Not Recovered/Not Resolved]
  - Partial seizures [Unknown]
  - Seizure [Not Recovered/Not Resolved]
  - Dysphonia [Not Recovered/Not Resolved]
  - Glossodynia [Recovered/Resolved]
  - Hypothyroidism [Not Recovered/Not Resolved]
  - Muscle twitching [Recovered/Resolved]
  - Sinus congestion [Not Recovered/Not Resolved]
  - Cough [Not Recovered/Not Resolved]
  - Diarrhoea [Not Recovered/Not Resolved]
  - Disease progression [Not Recovered/Not Resolved]
  - Mobility decreased [Not Recovered/Not Resolved]
  - Stress [Unknown]
  - Muscular weakness [Recovering/Resolving]
  - Abdominal discomfort [Not Recovered/Not Resolved]
  - Blood test abnormal [Unknown]
  - Bruxism [Unknown]
  - Contusion [Not Recovered/Not Resolved]
  - Flatulence [Unknown]
  - Memory impairment [Not Recovered/Not Resolved]
  - Neoplasm progression [Unknown]
  - Somnolence [Not Recovered/Not Resolved]

NARRATIVE: CASE EVENT DATE: 20130327
